FAERS Safety Report 24972755 (Version 2)
Quarter: 2025Q1

REPORT INFORMATION
  Report Type: Spontaneous
  Country: CO (occurrence: CO)
  Receive Date: 20250215
  Receipt Date: 20250227
  Transmission Date: 20250409
  Serious: Yes (Hospitalization)
  Sender: ACCORD
  Company Number: CO-MLMSERVICE-20250130-PI385947-00165-1

PATIENT
  Age: 61 Year
  Sex: Female

DRUGS (3)
  1. GEMCITABINE [Suspect]
     Active Substance: GEMCITABINE
     Indication: Squamous cell carcinoma of the cervix
     Dates: start: 202309, end: 2024
  2. GEMCITABINE [Suspect]
     Active Substance: GEMCITABINE
     Indication: Cervix carcinoma recurrent
     Dates: start: 202309, end: 2024
  3. GEMCITABINE [Suspect]
     Active Substance: GEMCITABINE
     Indication: Neoplasm progression
     Dates: start: 202309, end: 2024

REACTIONS (3)
  - Extremity necrosis [Recovered/Resolved]
  - Raynaud^s phenomenon [Recovering/Resolving]
  - Oedema peripheral [Unknown]

NARRATIVE: CASE EVENT DATE: 20240101
